FAERS Safety Report 6541064-9 (Version None)
Quarter: 2010Q1

REPORT INFORMATION
  Report Type: 
  Country: None (occurrence: None)
  Receive Date: 20100118
  Receipt Date: 20100115
  Transmission Date: 20100710
  Serious: Yes (Hospitalization)
  Sender: FDA-Public Use
  Company Number: GXKR2009DE03100

PATIENT
  Age: 60 Year
  Sex: Male
  Weight: 85 kg

DRUGS (7)
  1. ACETYLSALICYLIC ACID SRT [Suspect]
     Dosage: 100 MG, QD
     Route: 048
     Dates: start: 20060201
  2. CAPTOHEXAL (NGX) [Suspect]
     Dosage: 50 MG, BID
     Route: 048
  3. ATACAND [Suspect]
     Dosage: 16 MG, QD
     Route: 048
  4. ATACAND HCT [Suspect]
     Dosage: 16 MG, QD
     Route: 048
  5. TERUTROBAN [Suspect]
  6. BISOHEXAL [Concomitant]
     Route: 048
  7. SIOFOR [Concomitant]
     Route: 048

REACTIONS (1)
  - RENAL IMPAIRMENT [None]
